FAERS Safety Report 17390930 (Version 1)
Quarter: 2020Q1

REPORT INFORMATION
  Report Type: Spontaneous
  Country: US (occurrence: US)
  Receive Date: 20200207
  Receipt Date: 20200207
  Transmission Date: 20200409
  Serious: Yes (Other)
  Sender: FDA-Public Use
  Company Number: US-JNJFOC-20200151220

PATIENT
  Sex: Male
  Weight: 61.74 kg

DRUGS (2)
  1. TACROLIMUS. [Concomitant]
     Active Substance: TACROLIMUS
  2. STELARA [Suspect]
     Active Substance: USTEKINUMAB
     Indication: CROHN^S DISEASE
     Route: 058
     Dates: end: 20191016

REACTIONS (4)
  - Peritonitis [Unknown]
  - Abdominal abscess [Unknown]
  - Splenic abscess [Unknown]
  - Escherichia bacteraemia [Unknown]
